FAERS Safety Report 15600810 (Version 1)
Quarter: 2018Q4

REPORT INFORMATION
  Report Type: Spontaneous
  Country: FR (occurrence: FR)
  Receive Date: 20181109
  Receipt Date: 20181109
  Transmission Date: 20190205
  Serious: Yes (Hospitalization)
  Sender: FDA-Public Use
  Company Number: FR-ROCHE-2211400

PATIENT
  Age: 56 Year
  Sex: Female
  Weight: 48 kg

DRUGS (3)
  1. AVASTIN [Suspect]
     Active Substance: BEVACIZUMAB
     Indication: LUNG ADENOCARCINOMA
     Route: 041
  2. PEMETREXED. [Concomitant]
     Active Substance: PEMETREXED
     Indication: LUNG ADENOCARCINOMA
     Route: 041
  3. CARBOPLATINE [Concomitant]
     Active Substance: CARBOPLATIN
     Indication: LUNG ADENOCARCINOMA
     Route: 041

REACTIONS (2)
  - Wrong rate [Unknown]
  - Bradycardia [Recovering/Resolving]

NARRATIVE: CASE EVENT DATE: 20181008
